FAERS Safety Report 15438116 (Version 1)
Quarter: 2018Q3

REPORT INFORMATION
  Report Type: Report from Study
  Country: IT (occurrence: IT)
  Receive Date: 20180928
  Receipt Date: 20180928
  Transmission Date: 20181010
  Serious: Yes (Other)
  Sender: FDA-Public Use
  Company Number: IT-TEVA-2018-IT-956964

PATIENT
  Age: 55 Year
  Sex: Male

DRUGS (1)
  1. LITHIUM. [Suspect]
     Active Substance: LITHIUM
     Indication: BIPOLAR II DISORDER
     Route: 065
     Dates: start: 1991

REACTIONS (1)
  - Clear cell renal cell carcinoma [Unknown]

NARRATIVE: CASE EVENT DATE: 2005
